FAERS Safety Report 5071869-5 (Version None)
Quarter: 2006Q3

REPORT INFORMATION
  Report Type: 
  Country: None (occurrence: None)
  Receive Date: 20060801
  Receipt Date: 20060724
  Transmission Date: 20061208
  Serious: Yes (Hospitalization)
  Sender: FDA-Public Use
  Company Number: 2006RL000271

PATIENT
  Age: 39 Year
  Sex: Male

DRUGS (4)
  1. PROPAFENONE HCL [Suspect]
     Indication: ATRIAL FIBRILLATION
     Dosage: 425 MG; BID; PO
     Route: 048
     Dates: start: 20060628, end: 20060714
  2. VALPROATE SODIUM [Concomitant]
  3. VALPROATE SODIUM [Concomitant]
  4. PRELECTAL [Concomitant]

REACTIONS (1)
  - GRAND MAL CONVULSION [None]
